FAERS Safety Report 8494813-7 (Version None)
Quarter: 2012Q3

REPORT INFORMATION
  Report Type: 
  Country: None (occurrence: None)
  Receive Date: 20120709
  Receipt Date: 20120626
  Transmission Date: 20120928
  Serious: Yes (Hospitalization)
  Sender: FDA-Public Use
  Company Number: BE-ELI_LILLY_AND_COMPANY-BE201206009767

PATIENT
  Age: 49 Year
  Sex: Female

DRUGS (2)
  1. CYMBALTA [Suspect]
     Indication: DEPRESSION
     Dosage: 60 MG, UNKNOWN
  2. CYMBALTA [Suspect]
     Dosage: 60 MG, QOD

REACTIONS (3)
  - VISUAL ACUITY REDUCED [None]
  - VISUAL EVOKED POTENTIALS ABNORMAL [None]
  - VISION BLURRED [None]
